FAERS Safety Report 14690468 (Version 1)
Quarter: 2018Q1

REPORT INFORMATION
  Report Type: Spontaneous
  Country: GB (occurrence: GB)
  Receive Date: 20180328
  Receipt Date: 20180328
  Transmission Date: 20180509
  Serious: Yes (Other)
  Sender: FDA-Public Use
  Company Number: GB-TEVA-2018-GB-875081

PATIENT
  Age: 88 Year
  Sex: Female

DRUGS (5)
  1. BIRCH BARK EXTRACT [Interacting]
     Active Substance: BIRCH BARK\HERBALS
     Route: 065
  2. BUMETANIDE. [Concomitant]
     Active Substance: BUMETANIDE
     Route: 065
  3. CANDESARTAN. [Concomitant]
     Active Substance: CANDESARTAN
     Route: 065
  4. WARFARIN [Suspect]
     Active Substance: WARFARIN
     Indication: ATRIAL FIBRILLATION
     Route: 048
  5. DIGOXIN. [Concomitant]
     Active Substance: DIGOXIN
     Route: 065

REACTIONS (3)
  - Herbal interaction [Unknown]
  - International normalised ratio increased [Recovering/Resolving]
  - Food interaction [Unknown]
